FAERS Safety Report 21531855 (Version 2)
Quarter: 2022Q4

REPORT INFORMATION
  Report Type: Spontaneous
  Country: US (occurrence: US)
  Receive Date: 20221101
  Receipt Date: 20221116
  Transmission Date: 20230113
  Serious: Yes (Life-Threatening, Hospitalization)
  Sender: FDA-Public Use
  Company Number: US-TEVA-2022-US-2821367

PATIENT
  Age: 27 Year
  Sex: Female

DRUGS (24)
  1. ALPRAZOLAM [Suspect]
     Active Substance: ALPRAZOLAM
     Indication: Intensive care unit delirium
     Route: 065
  2. ALPRAZOLAM [Suspect]
     Active Substance: ALPRAZOLAM
     Dosage: THREE TIMES DAILY
     Route: 065
  3. CLONAZEPAM [Suspect]
     Active Substance: CLONAZEPAM
     Indication: Intensive care unit delirium
     Route: 065
  4. DEXMEDETOMIDINE [Suspect]
     Active Substance: DEXMEDETOMIDINE
     Indication: Intensive care unit delirium
     Dosage: 0.1-0.7 MCG/KG/HR CONTINUOUS INFUSION
     Route: 050
  5. DIAZEPAM [Suspect]
     Active Substance: DIAZEPAM
     Indication: Intensive care unit delirium
     Dosage: 15 MILLIGRAM DAILY; 5MG THREE TIMES DAILY
     Route: 065
  6. GABAPENTIN [Suspect]
     Active Substance: GABAPENTIN
     Indication: Intensive care unit delirium
     Route: 065
  7. HALOPERIDOL [Suspect]
     Active Substance: HALOPERIDOL
     Indication: Intensive care unit delirium
     Dosage: 6 MILLIGRAM DAILY; AS NEEDED
     Route: 065
  8. HYDROMORPHONE [Suspect]
     Active Substance: HYDROMORPHONE
     Indication: Intensive care unit delirium
     Dosage: AS NEEDED
     Route: 042
  9. LORAZEPAM [Suspect]
     Active Substance: LORAZEPAM
     Indication: Intensive care unit delirium
     Dosage: 8 MILLIGRAM DAILY; AS NEEDED
     Route: 065
  10. LORAZEPAM [Suspect]
     Active Substance: LORAZEPAM
     Dosage: 1-10 MG/HR CONTINUOUS INFUSION
     Route: 050
  11. OXYCODONE [Suspect]
     Active Substance: OXYCODONE
     Indication: Intensive care unit delirium
     Dosage: AS NEEDED
     Route: 065
  12. PROPOFOL [Suspect]
     Active Substance: PROPOFOL
     Indication: Intensive care unit delirium
     Dosage: CONTINUOUS INFUSION
     Route: 050
  13. PROPOFOL [Suspect]
     Active Substance: PROPOFOL
     Dosage: MAINTAINED AT 50MCG/KG/MIN
     Route: 050
  14. QUETIAPINE [Suspect]
     Active Substance: QUETIAPINE
     Indication: Intensive care unit delirium
     Dosage: 100 MILLIGRAM DAILY;
     Route: 065
  15. QUETIAPINE [Suspect]
     Active Substance: QUETIAPINE
     Dosage: 400 MILLIGRAM DAILY;
     Route: 065
  16. TRAZODONE [Suspect]
     Active Substance: TRAZODONE HYDROCHLORIDE
     Indication: Intensive care unit delirium
     Route: 065
  17. FENTANYL [Suspect]
     Active Substance: FENTANYL
     Indication: Intensive care unit delirium
     Dosage: CONTINUOUS INFUSION
     Route: 050
  18. FENTANYL [Suspect]
     Active Substance: FENTANYL
     Dosage: MAINTAINED AT 300MCG/HR
     Route: 050
  19. FENTANYL [Suspect]
     Active Substance: FENTANYL
     Dosage: 200 MCG/HR
     Route: 062
  20. FENTANYL [Suspect]
     Active Substance: FENTANYL
     Dosage: 300 MCG/HR
     Route: 062
  21. METHADONE [Suspect]
     Active Substance: METHADONE HYDROCHLORIDE
     Indication: Intensive care unit delirium
     Dosage: ENTERAL 10MG THREE TIMES DAILY
     Route: 050
  22. SERTRALINE [Suspect]
     Active Substance: SERTRALINE HYDROCHLORIDE
     Indication: Intensive care unit delirium
     Route: 065
  23. MIDAZOLAM [Suspect]
     Active Substance: MIDAZOLAM
     Indication: Intensive care unit delirium
     Dosage: 1-10 MG/HR CONTINUOUS INFUSION
     Route: 050
  24. KETAMINE [Suspect]
     Active Substance: KETAMINE
     Indication: Intensive care unit delirium
     Dosage: 1-10 MCG/KG/MIN CONTINUOUS INFUSION
     Route: 050

REACTIONS (5)
  - Posterior reversible encephalopathy syndrome [Recovering/Resolving]
  - Treatment failure [Unknown]
  - Intensive care unit delirium [Recovering/Resolving]
  - Haemodynamic instability [Unknown]
  - Respiratory failure [Unknown]
